FAERS Safety Report 4674164-9 (Version None)
Quarter: 2005Q2

REPORT INFORMATION
  Report Type: 
  Country: None (occurrence: None)
  Receive Date: 20050524
  Receipt Date: 20050509
  Transmission Date: 20051028
  Serious: Yes (Life-Threatening, Hospitalization, Other)
  Sender: FDA-Public Use
  Company Number: 0205014

PATIENT
  Age: 57 Year
  Sex: Female

DRUGS (4)
  1. DEPODUR [Suspect]
     Indication: POSTOPERATIVE ANALGESIA
     Dosage: 7.5 MG (ONCE, EPIDURAL)
     Route: 008
     Dates: start: 20050503, end: 20050503
  2. BUPIVACINE BUPIVACINE) [Concomitant]
  3. PROPOFOL [Concomitant]
  4. SODIUM CHLORIDE [Concomitant]

REACTIONS (10)
  - AORTIC ANEURYSM [None]
  - ATRIAL FIBRILLATION [None]
  - CARDIO-RESPIRATORY ARREST [None]
  - DYSPNOEA [None]
  - HYPOTENSION [None]
  - LOSS OF CONSCIOUSNESS [None]
  - MYOCARDIAL INFARCTION [None]
  - PCO2 INCREASED [None]
  - POST PROCEDURAL COMPLICATION [None]
  - SOMNOLENCE [None]
